FAERS Safety Report 4825229-X (Version None)
Quarter: 2005Q4

REPORT INFORMATION
  Report Type: 
  Country: None (occurrence: None)
  Receive Date: 20051109
  Receipt Date: 20051103
  Transmission Date: 20060501
  Serious: Yes (Other)
  Sender: FDA-Public Use
  Company Number: GBWYE114304NOV05

PATIENT
  Age: 34 Year
  Sex: Female

DRUGS (5)
  1. RAPAMUNE [Suspect]
     Indication: IMMUNOSUPPRESSION
     Dosage: 6 MG, ORAL; 5MG, NIGHTLY
     Route: 048
     Dates: start: 20040510, end: 20050915
  2. RAPAMUNE [Suspect]
     Indication: IMMUNOSUPPRESSION
     Dosage: 6 MG, ORAL; 5MG, NIGHTLY
     Route: 048
     Dates: start: 20050916
  3. DOXAZOSIN (DOXAZOSIN) [Concomitant]
  4. PREDNISONE [Concomitant]
  5. ALFACALCIDOL (ALFACALCIDOL) [Concomitant]

REACTIONS (1)
  - MENSTRUATION IRREGULAR [None]
